FAERS Safety Report 10164429 (Version 2)
Quarter: 2014Q2

REPORT INFORMATION
  Report Type: Spontaneous
  Country: US (occurrence: US)
  Receive Date: 20140510
  Receipt Date: 20140510
  Transmission Date: 20141212
  Serious: No
  Sender: FDA-Public Use
  Company Number: US-BRISTOL-MYERS SQUIBB COMPANY-18126094

PATIENT
  Age: 69 Year
  Sex: Female
  Weight: 77.1 kg

DRUGS (4)
  1. BYETTA UNK FORM [Suspect]
     Indication: WEIGHT CONTROL
     Route: 058
     Dates: start: 20081203
  2. BYETTA UNK FORM [Suspect]
     Indication: WEIGHT CONTROL
     Route: 058
     Dates: start: 2005, end: 2005
  3. EXENATIDE 5MCG PEN, DISPOSABLE DEVICE [Concomitant]
  4. EXENATIDE 5MCG PEN, DISPOSABLE DEVICE [Concomitant]

REACTIONS (1)
  - Incorrect product storage [Unknown]
